FAERS Safety Report 7237889-7 (Version None)
Quarter: 2011Q1

REPORT INFORMATION
  Report Type: 
  Country: None (occurrence: None)
  Receive Date: 20110121
  Receipt Date: 20110117
  Transmission Date: 20110831
  Serious: Yes (Other)
  Sender: FDA-Public Use
  Company Number: IT-AMGEN-ITASP2011002700

PATIENT

DRUGS (1)
  1. VECTIBIX [Suspect]
     Indication: COLON CANCER
     Dosage: 600 MG, UNK
     Route: 041
     Dates: start: 20100726, end: 20100726

REACTIONS (1)
  - SYNCOPE [None]
